FAERS Safety Report 9183327 (Version 1)
Quarter: 2012Q4

REPORT INFORMATION
  Report Type: 
  Country: CA (occurrence: CA)
  Receive Date: 20121030
  Receipt Date: 20121030
  Transmission Date: 20130627
  Serious: Yes (Other)
  Sender: FDA-Public Use
  Company Number: PHHY2012CA096888

PATIENT
  Age: 38 Year
  Sex: Female

DRUGS (4)
  1. CLOZARIL [Suspect]
  2. FENTANYL [Suspect]
     Dosage: 100 ug, QD
     Route: 062
  3. ZOLOFT [Suspect]
  4. TOPAMAX [Concomitant]

REACTIONS (4)
  - Drug withdrawal syndrome [Unknown]
  - Serotonin syndrome [Unknown]
  - Myoclonus [Unknown]
  - Convulsion [Unknown]
